FAERS Safety Report 6462851-1 (Version None)
Quarter: 2009Q4

REPORT INFORMATION
  Report Type: 
  Country: None (occurrence: None)
  Receive Date: 20091130
  Receipt Date: 20091120
  Transmission Date: 20100525
  Serious: Yes (Other)
  Sender: FDA-Public Use
  Company Number: US-BAXTER-2009BH017795

PATIENT

DRUGS (4)
  1. STERILE WATER FOR INJECTION IN PLASTIC CONTAINER [Suspect]
     Indication: DRUG USE FOR UNKNOWN INDICATION
     Route: 042
  2. INFUVITE PEDIATRIC [Suspect]
     Indication: DRUG USE FOR UNKNOWN INDICATION
     Route: 042
  3. DEXTROSE [Suspect]
     Indication: DRUG USE FOR UNKNOWN INDICATION
     Route: 042
  4. PROSTIN VR PEDIATRIC [Concomitant]
     Indication: DRUG USE FOR UNKNOWN INDICATION
     Route: 065

REACTIONS (3)
  - DEVICE MALFUNCTION [None]
  - HAEMORRHAGE [None]
  - OXYGEN SATURATION DECREASED [None]
